FAERS Safety Report 11915162 (Version 1)
Quarter: 2016Q1

REPORT INFORMATION
  Report Type: Spontaneous
  Country: US (occurrence: US)
  Receive Date: 20160114
  Receipt Date: 20160114
  Transmission Date: 20160526
  Serious: No
  Sender: FDA-Public Use
  Company Number: PHEH2016US001053

PATIENT
  Age: 65 Year
  Sex: Female
  Weight: 106.1 kg

DRUGS (2)
  1. STATIN//ATORVASTATIN CALCIUM [Concomitant]
     Active Substance: ATORVASTATIN CALCIUM
     Indication: PRODUCT USED FOR UNKNOWN INDICATION
     Route: 065
  2. EXTAVIA [Suspect]
     Active Substance: INTERFERON BETA-1B
     Indication: MULTIPLE SCLEROSIS
     Dosage: UNK UNK, QOD
     Route: 065
     Dates: start: 201509

REACTIONS (5)
  - Glycosylated haemoglobin increased [Unknown]
  - Platelet count increased [Unknown]
  - Blood chloride decreased [Unknown]
  - Blood triglycerides increased [Unknown]
  - Blood glucose increased [Unknown]

NARRATIVE: CASE EVENT DATE: 20151012
